FAERS Safety Report 10206856 (Version 1)
Quarter: 2014Q2

REPORT INFORMATION
  Report Type: Spontaneous
  Country: US (occurrence: None)
  Receive Date: 20140528
  Receipt Date: 20140528
  Transmission Date: 20141212
  Serious: Yes (Other)
  Sender: FDA-Public Use
  Company Number: None

PATIENT
  Age: 46 Year
  Sex: Male
  Weight: 104.33 kg

DRUGS (3)
  1. VENLAFAXINE ER [Suspect]
     Indication: TOURETTE^S DISORDER
     Dosage: 1 PILL ONCE DAILY TAKEN BY MOUTH
     Route: 048
     Dates: start: 20140430, end: 20140511
  2. VENLAFAXINE ER [Suspect]
     Indication: DEPRESSION
     Dosage: 1 PILL ONCE DAILY TAKEN BY MOUTH
     Route: 048
     Dates: start: 20140430, end: 20140511
  3. VENLAFAXINE ER [Suspect]
     Indication: ANXIETY
     Dosage: 1 PILL ONCE DAILY TAKEN BY MOUTH
     Route: 048
     Dates: start: 20140430, end: 20140511

REACTIONS (5)
  - Disturbance in attention [None]
  - Memory impairment [None]
  - Feeling abnormal [None]
  - Product substitution issue [None]
  - Product formulation issue [None]
